FAERS Safety Report 15001651 (Version 1)
Quarter: 2018Q2

REPORT INFORMATION
  Report Type: Report from Study
  Country: US (occurrence: US)
  Receive Date: 20180612
  Receipt Date: 20180612
  Transmission Date: 20180711
  Serious: Yes (Other)
  Sender: FDA-Public Use
  Company Number: US-TEVA-2018-US-902605

PATIENT
  Sex: Female

DRUGS (3)
  1. COPAXONE [Suspect]
     Active Substance: GLATIRAMER ACETATE
     Indication: MULTIPLE SCLEROSIS
     Route: 058
     Dates: start: 20171222
  2. TYLENOL [Concomitant]
     Active Substance: ACETAMINOPHEN
     Route: 065
  3. VITAMIN D3 [Concomitant]
     Active Substance: CHOLECALCIFEROL
     Route: 065

REACTIONS (4)
  - Flushing [Not Recovered/Not Resolved]
  - Anaphylactic reaction [Not Recovered/Not Resolved]
  - Nausea [Not Recovered/Not Resolved]
  - Vomiting [Not Recovered/Not Resolved]
